FAERS Safety Report 5106697-5 (Version None)
Quarter: 2006Q3

REPORT INFORMATION
  Report Type: 
  Country: None (occurrence: None)
  Receive Date: 20060913
  Receipt Date: 20060824
  Transmission Date: 20061208
  Serious: Yes (Hospitalization)
  Sender: FDA-Public Use
  Company Number: FR200606005262

PATIENT
  Age: 71 Year
  Sex: Female

DRUGS (14)
  1. FORTEO [Suspect]
     Indication: OSTEOPOROSIS
     Dosage: 20 UG; DAILY (1/D), SUBCUTANEOUS
     Route: 058
     Dates: start: 20050718
  2. FORTEO [Concomitant]
  3. PERINDOPRIL ERBUMINE [Concomitant]
  4. CORDARONE [Concomitant]
  5. VASTAREL (TRIMETAZIDINE HYDROCHLORIDE) [Concomitant]
  6. NEURONTIN [Concomitant]
  7. DAFALGAN (PARACETAMOL) [Concomitant]
  8. ACETAMINOPHEN W/ PROPOXYPHENE HCL [Concomitant]
  9. LORAZEPAM [Concomitant]
  10. MYOLASTAN (TETRAZEPAM) [Concomitant]
  11. OMEPRAZOLE [Concomitant]
  12. RIVOTRIL (CLONAZEPAM) DROPS [Concomitant]
  13. OROCAL D (3) (CALCIUM CARBONATE, COLECALCIFEROL) [Concomitant]
  14. BIPRETERAX (INDAPAMIDE, PERINDOPRIL ERBUMINE) [Concomitant]

REACTIONS (9)
  - ANOREXIA [None]
  - DEPRESSION [None]
  - DYSPNOEA [None]
  - HOT FLUSH [None]
  - HYPONATRAEMIA [None]
  - MALAISE [None]
  - PAIN IN EXTREMITY [None]
  - SYNCOPE VASOVAGAL [None]
  - VERTIGO [None]
